FAERS Safety Report 6262378-6 (Version None)
Quarter: 2009Q3

REPORT INFORMATION
  Report Type: 
  Country: None (occurrence: None)
  Receive Date: 20090709
  Receipt Date: 20090630
  Transmission Date: 20100115
  Serious: Yes (Other)
  Sender: FDA-Public Use
  Company Number: US-JNJFOC-20090700558

PATIENT
  Age: 71 Year
  Sex: Male
  Weight: 154.22 kg

DRUGS (10)
  1. TYLENOL (CAPLET) [Suspect]
     Route: 048
  2. TYLENOL (CAPLET) [Suspect]
     Indication: ARTHRITIS
     Route: 048
  3. GABAPENTIN [Concomitant]
     Indication: NEUROPATHY PERIPHERAL
  4. METFORMIN HCL [Concomitant]
     Indication: TYPE 2 DIABETES MELLITUS
  5. LISINOPRIL [Concomitant]
     Indication: HYPERTENSION
  6. HYDROCHLOROTHIAZIDE [Concomitant]
     Indication: FLUID RETENTION
  7. FISH OIL [Concomitant]
     Indication: MEDICAL DIET
  8. B50 [Concomitant]
     Indication: MEDICAL DIET
  9. E VITAMIN [Concomitant]
     Indication: MEDICAL DIET
  10. MULTI-VITAMINS [Concomitant]
     Indication: MEDICAL DIET

REACTIONS (2)
  - BLOOD PRESSURE DECREASED [None]
  - DIZZINESS [None]
